FAERS Safety Report 23492711 (Version 1)
Quarter: 2024Q1

REPORT INFORMATION
  Report Type: Report from Study
  Country: US (occurrence: None)
  Receive Date: 20240207
  Receipt Date: 20240207
  Transmission Date: 20240410
  Serious: Yes (Death)
  Sender: FDA-Public Use
  Company Number: 2024A028316

PATIENT
  Age: 27904 Day
  Sex: Female

DRUGS (2)
  1. TAGRISSO [Suspect]
     Active Substance: OSIMERTINIB
     Indication: Metastases to liver
     Route: 048
     Dates: start: 20230505
  2. TAGRISSO [Suspect]
     Active Substance: OSIMERTINIB
     Indication: Cholangiocarcinoma
     Route: 048
     Dates: start: 20230505

REACTIONS (1)
  - Death [Fatal]

NARRATIVE: CASE EVENT DATE: 20240122
